FAERS Safety Report 17985612 (Version 1)
Quarter: 2020Q3

REPORT INFORMATION
  Report Type: Spontaneous
  Country: JP (occurrence: JP)
  Receive Date: 20200706
  Receipt Date: 20200706
  Transmission Date: 20201103
  Serious: Yes (Other)
  Sender: FDA-Public Use
  Company Number: JP-ASTRAZENECA-2020SE85071

PATIENT
  Age: 40 Year
  Sex: Male

DRUGS (4)
  1. FLUNITRAZEPAM [Suspect]
     Active Substance: FLUNITRAZEPAM
     Indication: PSYCHOTIC DISORDER
     Route: 048
  2. QUETIAPINE. [Suspect]
     Active Substance: QUETIAPINE
     Indication: PSYCHOTIC DISORDER
     Route: 048
  3. TASMOLIN[BIPERIDEN HYDROCHLORIDE] [Concomitant]
  4. RISPERIDONE. [Suspect]
     Active Substance: RISPERIDONE
     Indication: PSYCHOTIC DISORDER
     Dosage: AS NEEDED
     Route: 048

REACTIONS (4)
  - Renal impairment [Unknown]
  - Intentional overdose [Unknown]
  - Compartment syndrome [Unknown]
  - Rhabdomyolysis [Unknown]
